FAERS Safety Report 5284469-9 (Version None)
Quarter: 2007Q1

REPORT INFORMATION
  Report Type: 
  Country: None (occurrence: None)
  Receive Date: 20070330
  Receipt Date: 20070330
  Transmission Date: 20070707
  Serious: Yes (Hospitalization)
  Sender: FDA-Public Use
  Company Number: None

PATIENT
  Age: 81 Year
  Sex: Male
  Weight: 60.782 kg

DRUGS (10)
  1. PHENAZOPYRIDINE HCL TAB [Suspect]
     Indication: DYSURIA
     Dosage: 200 MG TID PRN PO
     Route: 048
     Dates: start: 20070313, end: 20070316
  2. PHENAZOPYRIDINE HCL TAB [Suspect]
     Indication: URINARY TRACT INFECTION
     Dosage: 200 MG TID PRN PO
     Route: 048
     Dates: start: 20070313, end: 20070316
  3. ALENDRONATE SODIUM [Concomitant]
  4. MOMETASONE FUROATE [Concomitant]
  5. FELODIPINE [Concomitant]
  6. COMBIVENT [Concomitant]
  7. ASPIRIN [Concomitant]
  8. CALCIUM [Concomitant]
  9. HYDROCHLOROTHIAZIDE [Concomitant]
  10. MECLIZINE [Concomitant]

REACTIONS (7)
  - LETHARGY [None]
  - MENTAL STATUS CHANGES [None]
  - METHAEMOGLOBINAEMIA [None]
  - OVERDOSE [None]
  - RENAL FAILURE ACUTE [None]
  - RENAL TUBULAR NECROSIS [None]
  - YELLOW SKIN [None]
